FAERS Safety Report 4563843-X (Version None)
Quarter: 2005Q1

REPORT INFORMATION
  Report Type: 
  Country: None (occurrence: None)
  Receive Date: 20050128
  Receipt Date: 20041004
  Transmission Date: 20050727
  Serious: No
  Sender: FDA-Public Use
  Company Number: US-GLAXOSMITHKLINE-A0528386A

PATIENT
  Sex: Female

DRUGS (3)
  1. LEXIVA [Suspect]
     Indication: HIV INFECTION
     Route: 048
     Dates: start: 20040927
  2. ZIAGEN [Suspect]
     Indication: HIV INFECTION
     Route: 048
  3. VIREAD [Concomitant]

REACTIONS (2)
  - PYREXIA [None]
  - RASH [None]
